FAERS Safety Report 5475511-0 (Version None)
Quarter: 2007Q4

REPORT INFORMATION
  Report Type: 
  Country: None (occurrence: None)
  Receive Date: 20071001
  Receipt Date: 20070921
  Transmission Date: 20080405
  Serious: Yes (Hospitalization)
  Sender: FDA-Public Use
  Company Number: 2007SP010440

PATIENT
  Age: 44 Year
  Sex: Female
  Weight: 65.5901 kg

DRUGS (9)
  1. SCH 503034  (HCV PROTEASE INHIBITOR) [Suspect]
     Indication: HEPATITIS C
     Dosage: 800 MG; TID; PO
     Route: 048
     Dates: start: 20070417, end: 20070523
  2. PEG-INTRON [Suspect]
     Indication: HEPATITIS C
     Dosage: 120 MCG; QW; SC
     Route: 058
     Dates: start: 20070322, end: 20070523
  3. RIBAVIRIN [Suspect]
     Indication: HEPATITIS C
     Dosage: 400 MG; BID; PO
     Route: 048
     Dates: start: 20070322, end: 20070523
  4. LEVOTHYROXINE SODIUM [Concomitant]
  5. ESCITALOPRAM OXALATE [Concomitant]
  6. ALPRAZOLAM [Concomitant]
  7. PHENERGAN HCL [Concomitant]
  8. LAXATIVES [Concomitant]
  9. ULTRAM [Concomitant]

REACTIONS (39)
  - ACUTE RESPIRATORY DISTRESS SYNDROME [None]
  - ANAEMIA [None]
  - BACTERIAL INFECTION [None]
  - BLOOD ALBUMIN DECREASED [None]
  - BLOOD CULTURE POSITIVE [None]
  - BLOOD GLUCOSE INCREASED [None]
  - BLOOD SODIUM DECREASED [None]
  - CONFUSIONAL STATE [None]
  - CONSTIPATION [None]
  - DEHYDRATION [None]
  - DIARRHOEA [None]
  - DYSARTHRIA [None]
  - DYSTONIA [None]
  - ENTERITIS INFECTIOUS [None]
  - EYE DISORDER [None]
  - GASTROINTESTINAL DISORDER [None]
  - HAEMATOCHEZIA [None]
  - HYPONATRAEMIA [None]
  - HYPOVOLAEMIA [None]
  - INTESTINAL OBSTRUCTION [None]
  - LUNG INJURY [None]
  - MALNUTRITION [None]
  - MUCOSAL INFLAMMATION [None]
  - NAUSEA [None]
  - ORAL INTAKE REDUCED [None]
  - PANCYTOPENIA [None]
  - PULMONARY OEDEMA [None]
  - RENAL FAILURE ACUTE [None]
  - RENAL TUBULAR NECROSIS [None]
  - RESPIRATORY FAILURE [None]
  - SCAN ABDOMEN ABNORMAL [None]
  - SEPSIS [None]
  - SMALL INTESTINAL OBSTRUCTION [None]
  - SOMNOLENCE [None]
  - SYSTEMIC CANDIDA [None]
  - TONGUE PARALYSIS [None]
  - TORTICOLLIS [None]
  - URINARY TRACT INFECTION ENTEROCOCCAL [None]
  - VOMITING [None]
